FAERS Safety Report 4984489-5 (Version None)
Quarter: 2006Q2

REPORT INFORMATION
  Report Type: 
  Country: None (occurrence: None)
  Receive Date: 20060427
  Receipt Date: 20060425
  Transmission Date: 20061013
  Serious: Yes (Other)
  Sender: FDA-Public Use
  Company Number: DE-GLAXOSMITHKLINE-D0049505A

PATIENT
  Sex: Female

DRUGS (1)
  1. REQUIP [Suspect]
     Dosage: 4MG THREE TIMES PER DAY
     Route: 048
     Dates: start: 20040101

REACTIONS (3)
  - CONDITION AGGRAVATED [None]
  - MACULAR OEDEMA [None]
  - VISUAL ACUITY REDUCED [None]
